FAERS Safety Report 10636605 (Version 1)
Quarter: 2014Q4

REPORT INFORMATION
  Report Type: Spontaneous
  Country: GB (occurrence: GB)
  Receive Date: 20141208
  Receipt Date: 20141208
  Transmission Date: 20150529
  Serious: Yes (Hospitalization)
  Sender: FDA-Public Use
  Company Number: PHHY2014GB156593

PATIENT
  Age: 63 Year
  Sex: Female

DRUGS (1)
  1. ALENDRONIC ACID [Suspect]
     Active Substance: ALENDRONIC ACID
     Indication: OSTEOPOROSIS
     Route: 065

REACTIONS (14)
  - Pubis fracture [Recovered/Resolved]
  - Musculoskeletal pain [Recovered/Resolved]
  - Post-traumatic neck syndrome [Recovered/Resolved]
  - Mobility decreased [Recovered/Resolved]
  - Pelvic fracture [Recovered/Resolved]
  - Joint injury [Recovered/Resolved]
  - Nerve compression [Recovered/Resolved]
  - Arthralgia [Recovered/Resolved]
  - Dyskinesia [Recovered/Resolved]
  - Fall [Recovered/Resolved]
  - Spinal deformity [Recovered/Resolved]
  - Abasia [Recovered/Resolved]
  - Neuralgia [Recovered/Resolved]
  - Femur fracture [Recovered/Resolved]
